FAERS Safety Report 26212752 (Version 1)
Quarter: 2025Q4

REPORT INFORMATION
  Report Type: Spontaneous
  Country: GB (occurrence: GB)
  Receive Date: 20251230
  Receipt Date: 20251230
  Transmission Date: 20260118
  Serious: Yes (Other)
  Sender: MYLAN
  Company Number: GB-MYLANLABS-2025M1109684

PATIENT
  Age: 68 Year
  Sex: Male

DRUGS (2)
  1. GEMCITABINE [Suspect]
     Active Substance: GEMCITABINE
     Indication: Cutaneous T-cell lymphoma
     Dosage: UNK UNK, CYCLE (FIRST)
  2. GEMCITABINE [Suspect]
     Active Substance: GEMCITABINE
     Dosage: UNK UNK, CYCLE (SECOND)

REACTIONS (6)
  - Bacterial endophthalmitis [Not Recovered/Not Resolved]
  - Neutropenic sepsis [Unknown]
  - Enterobacter infection [Unknown]
  - Neutropenia [Unknown]
  - Splenic infarction [Unknown]
  - Retinal detachment [Unknown]
